FAERS Safety Report 20251698 (Version 1)
Quarter: 2021Q4

REPORT INFORMATION
  Report Type: Spontaneous
  Country: US (occurrence: US)
  Receive Date: 20211229
  Receipt Date: 20211229
  Transmission Date: 20220303
  Serious: No
  Sender: FDA-Public Use
  Company Number: US-COOPERSURGICAL, INC.-US-2021CPS000399

PATIENT
  Age: 47 Year
  Sex: Female
  Weight: 75.737 kg

DRUGS (3)
  1. PARAGARD T 380A [Suspect]
     Active Substance: COPPER
     Indication: Contraception
     Dosage: UNK
     Route: 015
     Dates: start: 2012
  2. METFORMIN [Concomitant]
     Active Substance: METFORMIN HYDROCHLORIDE
     Indication: Diabetes mellitus
     Dosage: 500 MG, BID
     Route: 065
  3. SYNTHROID [Concomitant]
     Active Substance: LEVOTHYROXINE SODIUM
     Indication: Hypothyroidism
     Dosage: 100 ?G, UNK
     Route: 065

REACTIONS (1)
  - Device expulsion [Not Recovered/Not Resolved]

NARRATIVE: CASE EVENT DATE: 20210121
